FAERS Safety Report 8429722-2 (Version None)
Quarter: 2012Q2

REPORT INFORMATION
  Report Type: 
  Country: None (occurrence: None)
  Receive Date: 20120612
  Receipt Date: 20120605
  Transmission Date: 20120825
  Serious: Yes (Other)
  Sender: FDA-Public Use
  Company Number: US-PFIZER INC-2012135318

PATIENT
  Age: 38 Year
  Sex: Female

DRUGS (1)
  1. ZITHROMAX [Suspect]
     Dosage: UNK

REACTIONS (3)
  - SUPRAVENTRICULAR TACHYCARDIA [None]
  - PALPITATIONS [None]
  - HEART RATE IRREGULAR [None]
